FAERS Safety Report 9201554 (Version 1)
Quarter: 2013Q2

REPORT INFORMATION
  Report Type: Spontaneous
  Country: JP (occurrence: JP)
  Receive Date: 20130401
  Receipt Date: 20130401
  Transmission Date: 20140414
  Serious: Yes (Other)
  Sender: FDA-Public Use
  Company Number: JP-PFIZER INC-2013098631

PATIENT
  Sex: Male

DRUGS (1)
  1. SUTENT [Suspect]
     Dosage: UNK

REACTIONS (1)
  - Cerebrovascular disorder [Unknown]
